FAERS Safety Report 7298856-0 (Version None)
Quarter: 2011Q1

REPORT INFORMATION
  Report Type: 
  Country: None (occurrence: None)
  Receive Date: 20110217
  Receipt Date: 20110211
  Transmission Date: 20110831
  Serious: Yes (Other)
  Sender: FDA-Public Use
  Company Number: AU-ROCHE-755891

PATIENT
  Sex: Male
  Weight: 79 kg

DRUGS (1)
  1. ISOTRETINOIN [Suspect]
     Indication: ACNE
     Dosage: FREQUENCY REPORTED AS DAILY.
     Route: 048
     Dates: start: 20100826, end: 20110127

REACTIONS (1)
  - GYNAECOMASTIA [None]
